FAERS Safety Report 7634158-8 (Version None)
Quarter: 2011Q3

REPORT INFORMATION
  Report Type: 
  Country: None (occurrence: None)
  Receive Date: 20110725
  Receipt Date: 20110721
  Transmission Date: 20111222
  Serious: No
  Sender: FDA-Public Use
  Company Number: US-PFIZER INC-2011166254

PATIENT
  Sex: Male
  Weight: 99.8 kg

DRUGS (2)
  1. PRISTIQ [Suspect]
     Indication: DEPRESSION
     Dosage: 50 MG, 1X/DAY
     Route: 048
     Dates: start: 20110715
  2. LIPITOR [Concomitant]
     Dosage: UNK

REACTIONS (3)
  - INSOMNIA [None]
  - NIGHTMARE [None]
  - ABNORMAL DREAMS [None]
